FAERS Safety Report 13469683 (Version 2)
Quarter: 2017Q2

REPORT INFORMATION
  Report Type: Spontaneous
  Country: US (occurrence: US)
  Receive Date: 20170422
  Receipt Date: 20170517
  Transmission Date: 20170830
  Serious: No
  Sender: FDA-Public Use
  Company Number: US-TEVA-758388ACC

PATIENT
  Age: 30 Year
  Sex: Female
  Weight: 67.65 kg

DRUGS (7)
  1. PARAGARD T 380A [Suspect]
     Active Substance: COPPER
     Indication: CONTRACEPTION
     Dates: start: 201610
  2. SPIRONOLACTONE. [Concomitant]
     Active Substance: SPIRONOLACTONE
  3. AMBIEN [Concomitant]
     Active Substance: ZOLPIDEM TARTRATE
     Indication: INSOMNIA
     Dosage: QHS PRN
  4. FLUTICASONE. [Concomitant]
     Active Substance: FLUTICASONE
     Dosage: SPROY EACH NOSTLE
  5. CLINDAMYCIN CLEANSER [Concomitant]
     Dosage: EXTERNAL SOLUTION
  6. FLONASE [Concomitant]
     Active Substance: FLUTICASONE PROPIONATE
     Indication: SEASONAL ALLERGY
  7. ALDACTONE [Concomitant]
     Active Substance: SPIRONOLACTONE

REACTIONS (3)
  - Device expulsion [Not Recovered/Not Resolved]
  - Muscle spasms [Unknown]
  - Dyspareunia [Unknown]

NARRATIVE: CASE EVENT DATE: 20170405
